FAERS Safety Report 7661294-2 (Version None)
Quarter: 2011Q3

REPORT INFORMATION
  Report Type: 
  Country: None (occurrence: None)
  Receive Date: 20110805
  Receipt Date: 20100929
  Transmission Date: 20111222
  Serious: No
  Sender: FDA-Public Use
  Company Number: US-ABBOTT-10P-163-0676016-00

PATIENT
  Weight: 72.64 kg

DRUGS (3)
  1. CLARINEX [Concomitant]
     Indication: SEASONAL ALLERGY
  2. LISINOPRIL [Concomitant]
     Indication: HYPERTENSION
  3. NIASPAN [Suspect]
     Indication: HIGH DENSITY LIPOPROTEIN DECREASED
     Dates: start: 20090101

REACTIONS (3)
  - HOT FLUSH [None]
  - DIZZINESS [None]
  - RED BLOOD CELL COUNT DECREASED [None]
